FAERS Safety Report 13801777 (Version 2)
Quarter: 2017Q3

REPORT INFORMATION
  Report Type: Spontaneous
  Country: IT (occurrence: IT)
  Receive Date: 20170727
  Receipt Date: 20170919
  Transmission Date: 20171127
  Serious: Yes (Other)
  Sender: FDA-Public Use
  Company Number: IT-GILEAD-2017-0285229

PATIENT
  Age: 78 Year
  Sex: Male

DRUGS (6)
  1. SPIRONOLACTONE. [Concomitant]
     Active Substance: SPIRONOLACTONE
     Dosage: UNK
     Route: 048
  2. BISOPROLOL [Concomitant]
     Active Substance: BISOPROLOL
     Dosage: UNK
     Route: 048
  3. HARVONI [Suspect]
     Active Substance: LEDIPASVIR\SOFOSBUVIR
     Indication: CHRONIC HEPATITIS C
     Dosage: 1 DF, QD
     Route: 048
     Dates: start: 20170301, end: 20170720
  4. RIFAXIMINE [Concomitant]
     Dosage: UNK
     Route: 048
  5. FUROSEMIDE. [Concomitant]
     Active Substance: FUROSEMIDE
     Dosage: UNK
     Route: 048
  6. LACTULOSE. [Concomitant]
     Active Substance: LACTULOSE
     Dosage: UNK
     Route: 048

REACTIONS (2)
  - Hypercreatininaemia [Unknown]
  - Azotaemia [Unknown]

NARRATIVE: CASE EVENT DATE: 20170712
